FAERS Safety Report 6047560-5 (Version None)
Quarter: 2009Q1

REPORT INFORMATION
  Report Type: 
  Country: None (occurrence: None)
  Receive Date: 20090123
  Receipt Date: 20090116
  Transmission Date: 20090719
  Serious: Yes (Death)
  Sender: FDA-Public Use
  Company Number: US-RANBAXY-2009RR-20620

PATIENT
  Age: 51 Year
  Sex: Male

DRUGS (3)
  1. ACETAMINOPHEN [Suspect]
     Indication: INTENTIONAL DRUG MISUSE
     Route: 048
  2. OXYCODONE AND ACETAMINOPHEN [Suspect]
     Indication: INTENTIONAL DRUG MISUSE
     Route: 048
  3. ETHANOL [Suspect]
     Indication: INTENTIONAL DRUG MISUSE

REACTIONS (1)
  - INTENTIONAL DRUG MISUSE [None]
